FAERS Safety Report 16240197 (Version 1)
Quarter: 2019Q2

REPORT INFORMATION
  Report Type: Spontaneous
  Country: NL (occurrence: DE)
  Receive Date: 20190425
  Receipt Date: 20190425
  Transmission Date: 20190711
  Serious: Yes (Life-Threatening)
  Sender: FDA-Public Use
  Company Number: DE-FRESENIUS KABI-FK201904764

PATIENT
  Age: 67 Year
  Sex: Female
  Weight: 48 kg

DRUGS (20)
  1. FLUOROURACIL. [Suspect]
     Active Substance: FLUOROURACIL
     Dosage: 369 MG, UNK
     Route: 042
  2. PANITUMUMAB [Suspect]
     Active Substance: PANITUMUMAB
     Indication: COLORECTAL CANCER METASTATIC
     Dosage: 288 MG, UNK
     Route: 042
  3. SODIUM BICARBONATE. [Concomitant]
     Active Substance: SODIUM BICARBONATE
     Indication: NEPHROPATHY
     Dosage: 5 MG, QD
     Route: 048
     Dates: start: 20000101
  4. CALCIUM ACETATE. [Concomitant]
     Active Substance: CALCIUM ACETATE
     Indication: NEPHROPATHY
     Route: 048
     Dates: start: 20000101
  5. PANITUMUMAB [Suspect]
     Active Substance: PANITUMUMAB
     Dosage: 288 MG, UNK
     Route: 042
  6. ATROPINE SULFATE. [Concomitant]
     Active Substance: ATROPINE SULFATE
     Indication: MUSCLE SPASMS
     Dosage: 0.25 MG
     Route: 058
  7. APREPITANT. [Concomitant]
     Active Substance: APREPITANT
     Indication: NAUSEA
     Dosage: 125 MG
     Route: 048
  8. DEXAMETHASONE. [Concomitant]
     Active Substance: DEXAMETHASONE
     Indication: NAUSEA
     Dosage: 8 ML, UNK
     Route: 042
  9. DOXYCYCLINE HYDROCHLORIDE [Concomitant]
     Active Substance: DOXYCYCLINE HYDROCHLORIDE
     Indication: RASH
     Dosage: 50 MG, QD
     Route: 048
     Dates: start: 20180620
  10. IRINOTECAN MONOHYDROCHLORIDE TRIHYDRATE [Suspect]
     Active Substance: IRINOTECAN HYDROCHLORIDE
     Indication: COLORECTAL CANCER METASTATIC
     Dosage: 171 MG, UNK
     Route: 065
  11. IRINOTECAN MONOHYDROCHLORIDE TRIHYDRATE [Suspect]
     Active Substance: IRINOTECAN HYDROCHLORIDE
     Dosage: 166 MG, UNK
     Route: 065
  12. LOPERAMIDE HYDROCHLORIDE. [Concomitant]
     Active Substance: LOPERAMIDE HYDROCHLORIDE
     Indication: DIARRHOEA
     Dosage: 10 MG, AS NECESSARY
     Route: 048
  13. LEUCOVORIN CALCIUM (MANUFACTURER UNKNOWN) [Suspect]
     Active Substance: LEUCOVORIN CALCIUM
     Dosage: 381 MG, UNK
     Route: 065
  14. PANITUMUMAB [Suspect]
     Active Substance: PANITUMUMAB
     Dosage: 270 MG, UNK
     Route: 042
  15. DOXYCYCLINE. [Concomitant]
     Active Substance: DOXYCYCLINE
     Indication: RASH
     Dosage: 2.5 MG, AS NECESSARY
     Route: 061
  16. FLUOROURACIL. [Suspect]
     Active Substance: FLUOROURACIL
     Indication: COLORECTAL CANCER METASTATIC
     Dosage: 381 MG, UNK
     Route: 042
  17. FLUOROURACIL. [Suspect]
     Active Substance: FLUOROURACIL
     Dosage: 2217 MG, UNK
     Route: 042
  18. FLUOROURACIL. [Suspect]
     Active Substance: FLUOROURACIL
     Dosage: 2289 MG, UNK
     Route: 042
  19. ONDANSETRON HYDROCHLORIDE. [Concomitant]
     Active Substance: ONDANSETRON HYDROCHLORIDE
     Indication: NAUSEA
     Dosage: 8 MG
     Route: 042
  20. LEUCOVORIN CALCIUM (MANUFACTURER UNKNOWN) [Suspect]
     Active Substance: LEUCOVORIN CALCIUM
     Indication: COLORECTAL CANCER METASTATIC
     Dosage: 369 MG, UNK
     Route: 065

REACTIONS (1)
  - Mental impairment [Not Recovered/Not Resolved]

NARRATIVE: CASE EVENT DATE: 20180924
